FAERS Safety Report 18670934 (Version 4)
Quarter: 2021Q3

REPORT INFORMATION
  Report Type: Report from Study
  Country: ES (occurrence: ES)
  Receive Date: 20201228
  Receipt Date: 20210714
  Transmission Date: 20211014
  Serious: Yes (Other)
  Sender: FDA-Public Use
  Company Number: ES-TEVA-2018-ES-864140

PATIENT
  Age: 33 Year
  Sex: Male

DRUGS (1)
  1. COPAXONE [Suspect]
     Active Substance: GLATIRAMER ACETATE
     Indication: MULTIPLE SCLEROSIS
     Route: 058
     Dates: start: 20151130

REACTIONS (12)
  - Necrosis [Recovering/Resolving]
  - Immediate post-injection reaction [Not Recovered/Not Resolved]
  - Hypoaesthesia [Recovered/Resolved]
  - Injection site mass [Not Recovered/Not Resolved]
  - Wrong technique in product usage process [Unknown]
  - Injection site discolouration [Not Recovered/Not Resolved]
  - Injection site urticaria [Not Recovered/Not Resolved]
  - Dyspnoea [Unknown]
  - Injection site exfoliation [Recovered/Resolved]
  - Injection site haemorrhage [Not Recovered/Not Resolved]
  - Intra-abdominal haematoma [Not Recovered/Not Resolved]
  - Injection site pain [Recovering/Resolving]

NARRATIVE: CASE EVENT DATE: 2018
